FAERS Safety Report 9309868 (Version 1)
Quarter: 2013Q2

REPORT INFORMATION
  Report Type: Spontaneous
  Country: US (occurrence: US)
  Receive Date: 20130526
  Receipt Date: 20130526
  Transmission Date: 20140414
  Serious: Yes (Other)
  Sender: FDA-Public Use
  Company Number: US-009507513-1305USA010964

PATIENT
  Age: 31 Year
  Sex: Female

DRUGS (7)
  1. SINGULAIR [Suspect]
     Dosage: UNK
     Route: 048
  2. DEXAMETHASONE [Concomitant]
     Indication: ASTHMA
     Dosage: UNK
  3. DOXEPIN HYDROCHLORIDE [Concomitant]
     Indication: RHINITIS ALLERGIC
  4. FAMOTIDINE [Concomitant]
  5. DIPHENHYDRAMINE HYDROCHLORIDE [Concomitant]
  6. HYDROXYZINE [Concomitant]
  7. CETIRIZINE HYDROCHLORIDE [Suspect]

REACTIONS (6)
  - Hepatic mass [Unknown]
  - Urticaria [Unknown]
  - Hypothyroidism [Unknown]
  - Hypertension [Unknown]
  - Breast adenoma [Unknown]
  - Off label use [Unknown]
